FAERS Safety Report 9915828 (Version 2)
Quarter: 2014Q2

REPORT INFORMATION
  Report Type: Spontaneous
  Country: FR (occurrence: None)
  Receive Date: 20140218
  Receipt Date: 20140416
  Transmission Date: 20141212
  Serious: Yes (Other)
  Sender: FDA-Public Use
  Company Number: 7267156

PATIENT
  Age: 19 Year
  Sex: Male

DRUGS (13)
  1. LEVOTHYROX [Suspect]
     Indication: PRODUCT USED FOR UNKNOWN INDICATION
     Dates: start: 20130730
  2. LOVENOX [Suspect]
     Indication: PRODUCT USED FOR UNKNOWN INDICATION
     Route: 058
     Dates: end: 201308
  3. MOPRAL [Suspect]
     Indication: PRODUCT USED FOR UNKNOWN INDICATION
     Route: 048
     Dates: start: 20131128
  4. TAHOR [Suspect]
     Indication: PRODUCT USED FOR UNKNOWN INDICATION
     Route: 048
     Dates: start: 20131203
  5. DOLIPRANE [Suspect]
     Indication: PRODUCT USED FOR UNKNOWN INDICATION
     Route: 048
     Dates: start: 20131128
  6. LYSANXIA [Suspect]
     Indication: PRODUCT USED FOR UNKNOWN INDICATION
     Dates: start: 20131128
  7. MOTILIUM [Suspect]
     Indication: PRODUCT USED FOR UNKNOWN INDICATION
     Dates: start: 20131128
  8. ATARAX [Suspect]
     Indication: PRODUCT USED FOR UNKNOWN INDICATION
     Dates: start: 20131128
  9. ARANESP [Concomitant]
  10. TOPALGIC /00599202/ (TRAMADOL HYDROCHLORIDE) (TRAMADOL HYDROCHLORIDE) [Concomitant]
  11. CALCIUM ACETATE (CALCIUM ACETATE) (CALCIUM ACETATE ) [Concomitant]
  12. GAVISCON /00237601/ (SODIUM BICARBONATE, ALUMINIUM HYDROXIDE GEL, DRIED, ALGINIC ACID, SODIUM ALGINATE, MAGNESIUM TRISILICATE) [Concomitant]
  13. EMLAPATCH (EMLAPATCH) (LIDOCAINE HYDROCHLORIDE, PRILOCAINE HYDROCHLORIDE) [Concomitant]

REACTIONS (5)
  - Thrombocytopenia [None]
  - Epistaxis [None]
  - Haemodialysis [None]
  - Inflammation [None]
  - Influenza [None]
